FAERS Safety Report 17385237 (Version 1)
Quarter: 2020Q1

REPORT INFORMATION
  Report Type: Spontaneous
  Country: US (occurrence: US)
  Receive Date: 20200206
  Receipt Date: 20200206
  Transmission Date: 20200409
  Serious: No
  Sender: FDA-Public Use
  Company Number: US-ABBVIE-19K-163-3184304-00

PATIENT
  Age: 75 Year
  Sex: Female
  Weight: 77.18 kg

DRUGS (3)
  1. PREDNISONE. [Concomitant]
     Active Substance: PREDNISONE
     Indication: RHEUMATOID ARTHRITIS
  2. HUMIRA [Suspect]
     Active Substance: ADALIMUMAB
     Indication: RHEUMATOID ARTHRITIS
     Route: 058
     Dates: start: 20191120
  3. METHOTREXATE. [Concomitant]
     Active Substance: METHOTREXATE
     Indication: RHEUMATOID ARTHRITIS

REACTIONS (7)
  - Injection site indentation [Recovered/Resolved]
  - Product administration error [Recovered/Resolved]
  - Incorrect dose administered [Unknown]
  - Rheumatoid arthritis [Recovering/Resolving]
  - Wrong technique in product usage process [Unknown]
  - Injection site haemorrhage [Recovered/Resolved]
  - Pain in extremity [Recovering/Resolving]

NARRATIVE: CASE EVENT DATE: 20191204
